FAERS Safety Report 17859805 (Version 9)
Quarter: 2023Q1

REPORT INFORMATION
  Report Type: Spontaneous
  Country: US (occurrence: US)
  Receive Date: 20200604
  Receipt Date: 20230217
  Transmission Date: 20230418
  Serious: Yes (Other)
  Sender: FDA-Public Use
  Company Number: US-PFIZER INC-2020218372

PATIENT
  Age: 60 Year
  Sex: Female
  Weight: 59.87 kg

DRUGS (6)
  1. XELJANZ [Suspect]
     Active Substance: TOFACITINIB CITRATE
     Indication: Colitis
     Dosage: 10 MG
  2. XELJANZ [Suspect]
     Active Substance: TOFACITINIB CITRATE
     Dosage: 5 MG
  3. XELJANZ [Suspect]
     Active Substance: TOFACITINIB CITRATE
     Dosage: 5 MG, 2X/DAY (1 TABLET TWICE A DAY)
  4. DIPHENOXYLATE [Concomitant]
     Active Substance: DIPHENOXYLATE
     Indication: Colitis
     Dosage: IN THE MORNING AND AFTER EATING
  5. GLYCOPYRROLATE [Concomitant]
     Active Substance: GLYCOPYRROLATE
     Indication: Colitis
     Dosage: 1 MG (1MG 2 A DAY, BEFORE EATING)
  6. ZINC [Concomitant]
     Active Substance: ZINC
     Dosage: UNK

REACTIONS (5)
  - Near death experience [Unknown]
  - Off label use [Unknown]
  - Confusional state [Unknown]
  - Feeling abnormal [Unknown]
  - Colon injury [Unknown]

NARRATIVE: CASE EVENT DATE: 20220801
